FAERS Safety Report 5567599-3 (Version None)
Quarter: 2007Q4

REPORT INFORMATION
  Report Type: 
  Country: None (occurrence: None)
  Receive Date: 20071219
  Receipt Date: 20071207
  Transmission Date: 20080405
  Serious: Yes (Other)
  Sender: FDA-Public Use
  Company Number: JP-PFIZER INC-2007103544

PATIENT
  Age: 61 Year
  Sex: Female

DRUGS (6)
  1. GABAPEN [Suspect]
     Indication: EPILEPSY
     Dosage: DAILY DOSE:1200MG
     Route: 048
  2. ZOVIRAX [Concomitant]
     Route: 042
  3. GLYCEOL [Concomitant]
     Route: 042
  4. OMEPRAL [Concomitant]
  5. VALPROATE SODIUM [Concomitant]
     Route: 048
  6. ALL OTHER THERAPEUTIC PRODUCTS [Concomitant]
     Route: 042

REACTIONS (2)
  - CEREBRAL INFARCTION [None]
  - EPILEPSY [None]
